FAERS Safety Report 5393339-7 (Version None)
Quarter: 2007Q3

REPORT INFORMATION
  Report Type: 
  Country: None (occurrence: None)
  Receive Date: 20070723
  Receipt Date: 20070711
  Transmission Date: 20080115
  Serious: Yes (Hospitalization)
  Sender: FDA-Public Use
  Company Number: PHEH2007US07227

PATIENT
  Age: 49 Year
  Sex: Female

DRUGS (6)
  1. ZELNORM [Suspect]
     Indication: IRRITABLE BOWEL SYNDROME
     Dosage: 6 MG, BID
     Route: 048
     Dates: start: 20031204, end: 20031201
  2. ZELNORM [Suspect]
     Dosage: 3 MG, BID
     Route: 048
     Dates: start: 20040409, end: 20060130
  3. ZELNORM [Suspect]
     Dosage: 6 MG, BID
     Route: 048
     Dates: start: 20060130, end: 20061001
  4. PRILOSEC [Concomitant]
     Dosage: 30 MG, QD
     Route: 048
  5. TAGAMET [Concomitant]
     Dosage: 150 MG, QD
     Route: 048
  6. XANAX [Concomitant]
     Indication: PANIC DISORDER
     Dosage: 0.25 MG, QD
     Route: 048
     Dates: start: 20020820

REACTIONS (5)
  - ABDOMINAL PAIN [None]
  - ARTHRALGIA [None]
  - AUTOIMMUNE DISORDER [None]
  - HEART RATE INCREASED [None]
  - MYALGIA [None]
